FAERS Safety Report 10071007 (Version 1)
Quarter: 2014Q2

REPORT INFORMATION
  Report Type: Spontaneous
  Country: DE (occurrence: DE)
  Receive Date: 20140410
  Receipt Date: 20140410
  Transmission Date: 20141212
  Serious: Yes (Other)
  Sender: FDA-Public Use
  Company Number: DE-BRISTOL-MYERS SQUIBB COMPANY-20593083

PATIENT
  Age: 74 Year
  Sex: Male

DRUGS (5)
  1. ELIQUIS [Suspect]
     Dosage: 1 DF : 5 UNITS NOS.
  2. RAMIPRIL [Concomitant]
     Dosage: 1 DF : 2.5 UNITS NOS.?1-0-0
  3. BISOPROLOL FUMARATE [Concomitant]
     Dosage: 1 DF : 2.5 UNITS NOS.?1-0-0
  4. TAMSULOSIN [Concomitant]
     Dosage: 1 DF : 0.4 UNITS NOS.?1-0-0
  5. JODTHYROX [Concomitant]
     Dosage: 1 DF : 7.5 UNITS NOS.?1-0-0

REACTIONS (2)
  - Abdominal pain upper [Unknown]
  - Gamma-glutamyltransferase increased [Recovering/Resolving]
